FAERS Safety Report 16009448 (Version 1)
Quarter: 2019Q1

REPORT INFORMATION
  Report Type: Spontaneous
  Country: CA (occurrence: CA)
  Receive Date: 20190225
  Receipt Date: 20190225
  Transmission Date: 20190418
  Serious: Yes (Other)
  Sender: FDA-Public Use
  Company Number: CA-TEVA-2019-CA-1017452

PATIENT
  Age: 54 Year
  Sex: Male

DRUGS (3)
  1. ACTEMRA [Concomitant]
     Active Substance: TOCILIZUMAB
  2. METHOTREXATE. [Suspect]
     Active Substance: METHOTREXATE
     Indication: PRODUCT USED FOR UNKNOWN INDICATION
     Route: 065
  3. ENBREL [Suspect]
     Active Substance: ETANERCEPT
     Indication: PRODUCT USED FOR UNKNOWN INDICATION
     Route: 065

REACTIONS (4)
  - Drug interaction [Recovered/Resolved]
  - Pulmonary toxicity [Recovered/Resolved]
  - Oxygen saturation abnormal [Recovered/Resolved]
  - Lung disorder [Recovered/Resolved]
